FAERS Safety Report 14663831 (Version 1)
Quarter: 2018Q1

REPORT INFORMATION
  Report Type: Spontaneous
  Country: GB (occurrence: GB)
  Receive Date: 20180321
  Receipt Date: 20180321
  Transmission Date: 20180509
  Serious: Yes (Hospitalization)
  Sender: FDA-Public Use
  Company Number: GB-BIOCOMPATIBLES UK LTD-2018BTG01522

PATIENT
  Age: 49 Year
  Sex: Female

DRUGS (3)
  1. DIGIFAB [Suspect]
     Active Substance: OVINE DIGOXIN IMMUNE FAB
     Dosage: 200 MG, UNK
  2. DIGIFAB [Suspect]
     Active Substance: OVINE DIGOXIN IMMUNE FAB
     Dosage: 120 MG, UNK
  3. DIGIFAB [Suspect]
     Active Substance: OVINE DIGOXIN IMMUNE FAB
     Indication: TOXICITY TO VARIOUS AGENTS
     Dosage: 200 MG, UNK

REACTIONS (4)
  - Off label use [Unknown]
  - Hyperkalaemia [Recovered/Resolved]
  - Atrioventricular block second degree [Recovered/Resolved]
  - Product availability issue [Unknown]
